FAERS Safety Report 6025955-3 (Version None)
Quarter: 2009Q1

REPORT INFORMATION
  Report Type: 
  Country: None (occurrence: None)
  Receive Date: 20090102
  Receipt Date: 20081223
  Transmission Date: 20090719
  Serious: Yes (Other)
  Sender: FDA-Public Use
  Company Number: US-BAYER-200837143NA

PATIENT
  Age: 16 Year
  Sex: Female
  Weight: 60 kg

DRUGS (2)
  1. YAZ [Suspect]
     Indication: DRUG USE FOR UNKNOWN INDICATION
     Route: 048
     Dates: start: 20060501, end: 20080801
  2. NORDETTE-21 [Concomitant]

REACTIONS (5)
  - ABDOMINAL PAIN [None]
  - APPENDICECTOMY [None]
  - CONSTIPATION [None]
  - DIARRHOEA [None]
  - IRRITABLE BOWEL SYNDROME [None]
